FAERS Safety Report 18599485 (Version 1)
Quarter: 2020Q4

REPORT INFORMATION
  Report Type: Spontaneous
  Country: US (occurrence: US)
  Receive Date: 20201210
  Receipt Date: 20201210
  Transmission Date: 20210114
  Serious: Yes (Other)
  Sender: FDA-Public Use
  Company Number: US-TEVA-2020-US-1857538

PATIENT
  Age: 85 Year
  Sex: Male

DRUGS (3)
  1. ALPRAZOLAM TEVA [Suspect]
     Active Substance: ALPRAZOLAM
     Indication: INSOMNIA
     Route: 065
  2. LORAZEPAM. [Concomitant]
     Active Substance: LORAZEPAM
     Dosage: 1 MG AT BEDTIME AND 1 MG IN THE MIDDLE OF THE NIGHT TO HIS CURRENT DOSE OF 0.5 MG AT BEDTIME AND 0.5
     Route: 065
     Dates: start: 2014
  3. ALPRAZOLAM TEVA [Suspect]
     Active Substance: ALPRAZOLAM
     Indication: DEPRESSION

REACTIONS (3)
  - Dizziness [Recovered/Resolved]
  - Product use in unapproved indication [Unknown]
  - Drug dependence [Not Recovered/Not Resolved]
